FAERS Safety Report 5130520-6 (Version None)
Quarter: 2006Q4

REPORT INFORMATION
  Report Type: 
  Country: None (occurrence: None)
  Receive Date: 20061019
  Receipt Date: 20061017
  Transmission Date: 20070319
  Serious: Yes (Other)
  Sender: FDA-Public Use
  Company Number: US-GLAXOSMITHKLINE-A0623836A

PATIENT
  Sex: Male

DRUGS (1)
  1. SOMINEX [Suspect]
     Indication: DRUG USE FOR UNKNOWN INDICATION
     Dosage: 4U SINGLE DOSE
     Route: 048
     Dates: start: 20061017

REACTIONS (4)
  - HALLUCINATION [None]
  - INTENTIONAL DRUG MISUSE [None]
  - MYDRIASIS [None]
  - SPEECH DISORDER [None]
